FAERS Safety Report 5910310-4 (Version None)
Quarter: 2008Q4

REPORT INFORMATION
  Report Type: 
  Country: None (occurrence: None)
  Receive Date: 20081007
  Receipt Date: 20080416
  Transmission Date: 20090506
  Serious: No
  Sender: FDA-Public Use
  Company Number: US-ASTRAZENECA-2007UW26679

PATIENT
  Age: 60 Year
  Sex: Female
  Weight: 73.5 kg

DRUGS (3)
  1. ARIMIDEX [Suspect]
     Indication: BREAST CANCER
     Route: 048
     Dates: start: 20070125
  2. VITAMIN E [Interacting]
     Indication: VULVOVAGINAL DRYNESS
     Route: 067
     Dates: start: 20070101
  3. SYNTHROID [Concomitant]

REACTIONS (2)
  - DRUG INTERACTION [None]
  - VULVOVAGINAL DRYNESS [None]
